FAERS Safety Report 4712231-1 (Version None)
Quarter: 2005Q3

REPORT INFORMATION
  Report Type: 
  Country: None (occurrence: None)
  Receive Date: 20050712
  Receipt Date: 20000320
  Transmission Date: 20060218
  Serious: Yes (Other)
  Sender: FDA-Public Use
  Company Number: US-GLAXOSMITHKLINE-A0323434A

PATIENT
  Age: 61 Year
  Sex: Female

DRUGS (13)
  1. PAXIL [Suspect]
     Indication: DEPRESSION
     Dosage: 20MG PER DAY
     Route: 048
     Dates: start: 19960101
  2. ESTROGEN [Concomitant]
  3. ATENOLOL [Concomitant]
  4. ATIVAN [Concomitant]
     Dosage: 1MG TWICE PER DAY
     Route: 048
  5. ASPIRIN [Concomitant]
     Route: 048
  6. PRILOSEC [Concomitant]
     Route: 048
  7. MULTI-VITAMIN [Concomitant]
     Route: 048
  8. VITAMIN B COMPLEX CAP [Concomitant]
  9. LORATADINE [Concomitant]
  10. FLUTICASONE PROPIONATE [Concomitant]
     Route: 045
  11. ESTRADIOL [Concomitant]
  12. FELODIPINE [Concomitant]
  13. HYDROCHLOROTHIAZIDE [Concomitant]

REACTIONS (8)
  - DIZZINESS [None]
  - DRUG WITHDRAWAL SYNDROME [None]
  - NEGATIVE THOUGHTS [None]
  - PARAESTHESIA [None]
  - SUICIDAL IDEATION [None]
  - TENSION HEADACHE [None]
  - TINNITUS [None]
  - WEIGHT INCREASED [None]
